FAERS Safety Report 10418950 (Version 1)
Quarter: 2014Q2

REPORT INFORMATION
  Report Type: Spontaneous
  Country: US (occurrence: None)
  Receive Date: 20140625
  Receipt Date: 20140625
  Transmission Date: 20141212
  Serious: Yes (Hospitalization)
  Sender: FDA-Public Use
  Company Number: A-NJ2014-95717

PATIENT
  Age: 48 Year
  Sex: Female

DRUGS (10)
  1. OPSUMIT (MACITENTAN) [Suspect]
     Indication: PULMONARY ARTERIAL HYPERTENSION
     Route: 048
     Dates: start: 201311
  2. ADCIRCA (TADALAFIL) [Concomitant]
  3. TORSEMIDE [Concomitant]
  4. ALDACTONE (POTASSIUM CANRENOATE) [Concomitant]
  5. GLYBURIDE AND METFORMIN HCL (GLIBENCLAMIDE, METFORMIN HYDROCHLORIDE) [Concomitant]
  6. MULTIVITAMIN (ASCORBIC ACID, BIOTIN, FOLIC ACID, NICOTINIC ACID, PANTOTHENIC ACID, PYRIDOXINE HYDROCHLORIDE, RETINOL, RIBOFLAVIN, THIAMINE HYDROCHLORIDE, TOCOPHEROL, VITAMIN B12 NOS, NITAMON D NOS, VITAMIN K NOS) [Concomitant]
  7. OMEPRAZOLE (OMEPRAZOLE MAGNESIUM) [Concomitant]
  8. NOVOLOG (INSULIN ASPART) [Concomitant]
  9. DIGOXIN (BETA-ACETYLDIGOXIN) [Concomitant]
  10. PREDNISONE (PREDNISONE ACETATE) [Concomitant]

REACTIONS (9)
  - Fluid overload [None]
  - Cardiac failure congestive [None]
  - Fluid retention [None]
  - Weight increased [None]
  - Cough [None]
  - Oedema peripheral [None]
  - Abdominal distension [None]
  - Pericardial effusion [None]
  - Dyspnoea [None]
